FAERS Safety Report 25923386 (Version 2)
Quarter: 2025Q4

REPORT INFORMATION
  Report Type: Spontaneous
  Country: US (occurrence: US)
  Receive Date: 20251015
  Receipt Date: 20251023
  Transmission Date: 20260118
  Serious: Yes (Hospitalization)
  Sender: ROCHE
  Company Number: US-ROCHE-10000407116

PATIENT
  Age: 53 Year
  Sex: Female

DRUGS (4)
  1. ITOVEBI [Suspect]
     Active Substance: INAVOLISIB
     Indication: Breast cancer
     Dosage: DATE OF LAST ADMINISTRATION (9 MG) 20-SEP-2025
     Route: 048
     Dates: start: 20250909
  2. ITOVEBI [Suspect]
     Active Substance: INAVOLISIB
     Dosage: DATE OF LAST ADMINISTRATION  (10-OCT-2025)
     Route: 048
     Dates: start: 20250812
  3. IBRANCE [Suspect]
     Active Substance: PALBOCICLIB
     Indication: Breast cancer
     Dosage: DATE OF LAST ADMINISTRATION (20-SEP-2025)
     Route: 048
     Dates: start: 20250909
  4. IBRANCE [Suspect]
     Active Substance: PALBOCICLIB
     Dosage: TAKE ONE CAPSULE (100 MG) BY MOUTH ONCE DAILY FOR 21?DAYS/ 7 DAYS OFF
     Route: 048
     Dates: start: 20250812

REACTIONS (6)
  - Diarrhoea [Recovering/Resolving]
  - Nausea [Recovering/Resolving]
  - Vomiting [Recovering/Resolving]
  - Taste disorder [Recovering/Resolving]
  - Oropharyngeal pain [Unknown]
  - Diabetes mellitus [Unknown]

NARRATIVE: CASE EVENT DATE: 20250920
